FAERS Safety Report 6533854-3 (Version None)
Quarter: 2010Q1

REPORT INFORMATION
  Report Type: 
  Country: None (occurrence: None)
  Receive Date: 20100111
  Receipt Date: 20091120
  Transmission Date: 20100710
  Serious: No
  Sender: FDA-Public Use
  Company Number: US-ABBOTT-09P-163-0611021-00

PATIENT
  Age: 34 Year
  Sex: Female

DRUGS (1)
  1. VICODIN [Suspect]
     Indication: PROCEDURAL PAIN
     Dosage: UNKNOWN DOSE
     Route: 048
     Dates: start: 20091119, end: 20091119

REACTIONS (1)
  - EXPIRED DRUG ADMINISTERED [None]
